FAERS Safety Report 14334070 (Version 1)
Quarter: 2017Q4

REPORT INFORMATION
  Report Type: Spontaneous
  Country: US (occurrence: US)
  Receive Date: 20171228
  Receipt Date: 20171228
  Transmission Date: 20180321
  Serious: No
  Sender: FDA-Public Use
  Company Number: US-BAYER-2017-250606

PATIENT
  Age: 74 Year
  Sex: Female
  Weight: 75 kg

DRUGS (3)
  1. ALEVE TENS DEVICE DIRECT THERAPY UNIT [Suspect]
     Active Substance: DEVICE
     Indication: SPINAL COLUMN STENOSIS
     Dates: start: 20171214, end: 20171214
  2. TYLENOL [Concomitant]
     Active Substance: ACETAMINOPHEN
     Dosage: UNK
  3. ALEVE [Suspect]
     Active Substance: NAPROXEN SODIUM
     Dosage: Q2 DF, QD

REACTIONS (3)
  - Gait disturbance [Recovering/Resolving]
  - Drug ineffective [Unknown]
  - Therapeutic product ineffective for unapproved indication [Recovering/Resolving]

NARRATIVE: CASE EVENT DATE: 20171214
